FAERS Safety Report 7234327-5 (Version None)
Quarter: 2011Q1

REPORT INFORMATION
  Report Type: 
  Country: None (occurrence: None)
  Receive Date: 20110119
  Receipt Date: 20110111
  Transmission Date: 20110831
  Serious: Yes (Other)
  Sender: FDA-Public Use
  Company Number: US-PFIZER INC-2011008839

PATIENT
  Sex: Male

DRUGS (1)
  1. CHILDREN'S DIMETAPP COLD AND COUGH [Suspect]
     Dosage: UNK
     Route: 048

REACTIONS (2)
  - ACCIDENTAL OVERDOSE [None]
  - ACCIDENTAL DRUG INTAKE BY CHILD [None]
